FAERS Safety Report 11822621 (Version 1)
Quarter: 2015Q4

REPORT INFORMATION
  Report Type: Spontaneous
  Country: US (occurrence: US)
  Receive Date: 20151210
  Receipt Date: 20151210
  Transmission Date: 20160305
  Serious: No
  Sender: FDA-Public Use
  Company Number: US-JNJFOC-20150603674

PATIENT
  Sex: Female

DRUGS (12)
  1. ACYCLOVIR. [Concomitant]
     Active Substance: ACYCLOVIR
  2. L-LYSINE [Concomitant]
     Active Substance: LYSINE
  3. CALCIUM [Concomitant]
     Active Substance: CALCIUM
  4. VITAMIN B12 [Concomitant]
     Active Substance: CYANOCOBALAMIN
  5. CENTRUM SILVER [Concomitant]
     Active Substance: MINERALS\VITAMINS
  6. OCUVITE (VITAMIN COMBINATIONS) [Concomitant]
  7. BONIVA [Concomitant]
     Active Substance: IBANDRONATE SODIUM
  8. ATENOLOL. [Concomitant]
     Active Substance: ATENOLOL
  9. BABY ASPIRIN [Concomitant]
     Active Substance: ASPIRIN
  10. VITAMIN C [Concomitant]
     Active Substance: ASCORBIC ACID
  11. IMBRUVICA [Suspect]
     Active Substance: IBRUTINIB
     Indication: CHRONIC LYMPHOCYTIC LEUKAEMIA
     Route: 048
     Dates: start: 20150424
  12. NEXIUM [Concomitant]
     Active Substance: ESOMEPRAZOLE MAGNESIUM

REACTIONS (3)
  - Confusional state [Unknown]
  - Bone pain [Unknown]
  - Diarrhoea [Unknown]

NARRATIVE: CASE EVENT DATE: 2015
